FAERS Safety Report 12711856 (Version 1)
Quarter: 2016Q3

REPORT INFORMATION
  Report Type: Spontaneous
  Country: US (occurrence: US)
  Receive Date: 20160902
  Receipt Date: 20160902
  Transmission Date: 20161109
  Serious: Yes (Hospitalization)
  Sender: FDA-Public Use
  Company Number: None

PATIENT
  Age: 59 Year
  Sex: Male
  Weight: 67.85 kg

DRUGS (10)
  1. LEVOTHYROXINE SODIUM. [Concomitant]
     Active Substance: LEVOTHYROXINE SODIUM
  2. CETUXIMAB [Suspect]
     Active Substance: CETUXIMAB
     Indication: SQUAMOUS CELL CARCINOMA OF HEAD AND NECK
     Dosage: CETUXIMAB 250 MG/M2 WEEKLY IV
     Route: 042
     Dates: start: 20160120, end: 20160718
  3. NEXIUM [Concomitant]
     Active Substance: ESOMEPRAZOLE MAGNESIUM
  4. CHLORHEXIDINE GLUCONATE. [Concomitant]
     Active Substance: CHLORHEXIDINE GLUCONATE
  5. OXYCODONE [Concomitant]
     Active Substance: OXYCODONE
  6. METOPROLOL TARTRATE. [Concomitant]
     Active Substance: METOPROLOL TARTRATE
  7. TRIAMCINOLONE ACETONIDE. [Concomitant]
     Active Substance: TRIAMCINOLONE ACETONIDE
  8. PROCHLORPERAZINE MALEATE. [Concomitant]
     Active Substance: PROCHLORPERAZINE MALEATE
  9. PAZOPANIB [Suspect]
     Active Substance: PAZOPANIB
     Indication: SQUAMOUS CELL CARCINOMA OF HEAD AND NECK
     Route: 048
     Dates: start: 20160120, end: 20160731
  10. FENTANYL. [Concomitant]
     Active Substance: FENTANYL

REACTIONS (8)
  - Malaise [None]
  - Deep vein thrombosis [None]
  - Skin infection [None]
  - Platelet count decreased [None]
  - Squamous cell carcinoma of the oral cavity [None]
  - Malignant neoplasm progression [None]
  - Staphylococcus test positive [None]
  - Necrosis [None]

NARRATIVE: CASE EVENT DATE: 20160822
